FAERS Safety Report 6605083-6 (Version None)
Quarter: 2010Q1

REPORT INFORMATION
  Report Type: 
  Country: None (occurrence: None)
  Receive Date: 20100226
  Receipt Date: 20100224
  Transmission Date: 20100710
  Serious: Yes (Death, Life-Threatening, Hospitalization, Disabling)
  Sender: FDA-Public Use
  Company Number: US-MERCK-1002USA01217

PATIENT
  Age: 46 Year
  Sex: Male

DRUGS (3)
  1. ISENTRESS [Suspect]
     Indication: HIV INFECTION
     Route: 048
     Dates: start: 20091204
  2. TRUVADA [Concomitant]
     Route: 065
     Dates: start: 20091204
  3. DAPSONE [Concomitant]
     Route: 065
     Dates: start: 20091114

REACTIONS (2)
  - RENAL FAILURE [None]
  - UPPER RESPIRATORY TRACT INFECTION [None]
